FAERS Safety Report 23575987 (Version 2)
Quarter: 2024Q2

REPORT INFORMATION
  Report Type: Spontaneous
  Country: US (occurrence: US)
  Receive Date: 20240228
  Receipt Date: 20240606
  Transmission Date: 20240715
  Serious: No
  Sender: FDA-Public Use
  Company Number: US-SA-SAC20240226000881

PATIENT
  Age: 63 Year
  Sex: Male
  Weight: 91.17 kg

DRUGS (7)
  1. KEVZARA [Suspect]
     Active Substance: SARILUMAB
     Indication: Polymyalgia rheumatica
     Dosage: 200 MG , QOW
     Route: 058
     Dates: start: 20240110
  2. KEVZARA [Suspect]
     Active Substance: SARILUMAB
     Indication: Spinal osteoarthritis
  3. FISH OIL [Concomitant]
     Active Substance: FISH OIL
  4. VITAMINS NOS [Concomitant]
     Active Substance: VITAMINS
  5. VITAMIN C [Concomitant]
     Active Substance: ASCORBIC ACID
  6. VITAMIN D3 [Concomitant]
     Active Substance: CHOLECALCIFEROL
  7. OSTEO BI-FLEX [ASCORBIC ACID;BOSWELLIA SERRATA RESIN;CHONDROITIN SULFA [Concomitant]

REACTIONS (4)
  - Back pain [Not Recovered/Not Resolved]
  - Hernia [Unknown]
  - Drug ineffective [Unknown]
  - Product use in unapproved indication [Unknown]

NARRATIVE: CASE EVENT DATE: 20240101
